FAERS Safety Report 20512564 (Version 1)
Quarter: 2022Q1

REPORT INFORMATION
  Report Type: Spontaneous
  Country: US (occurrence: None)
  Receive Date: 20220223
  Receipt Date: 20220223
  Transmission Date: 20220424
  Serious: Yes (Hospitalization)
  Sender: FDA-Public Use
  Company Number: None

PATIENT
  Age: 36 Year
  Sex: Male
  Weight: 63 kg

DRUGS (2)
  1. MESALAMINE EXTENDED-RELEASE [Suspect]
     Active Substance: MESALAMINE
     Indication: Crohn^s disease
     Dosage: FREQUENCY : DAILY;?
     Route: 048
     Dates: start: 20211012, end: 20211026
  2. BUDESONIDE [Suspect]
     Active Substance: BUDESONIDE

REACTIONS (6)
  - Chest pain [None]
  - Chest discomfort [None]
  - Dyspnoea exertional [None]
  - Delirium [None]
  - Confusional state [None]
  - Myocarditis [None]

NARRATIVE: CASE EVENT DATE: 20211026
